FAERS Safety Report 6298327-4 (Version None)
Quarter: 2009Q3

REPORT INFORMATION
  Report Type: 
  Country: None (occurrence: None)
  Receive Date: 20090805
  Receipt Date: 20090724
  Transmission Date: 20100115
  Serious: Yes (Hospitalization)
  Sender: FDA-Public Use
  Company Number: PHHY2009CA31011

PATIENT
  Sex: Female

DRUGS (3)
  1. CLOZARIL [Suspect]
     Indication: DELUSION
     Dosage: UNK
     Dates: start: 20090318
  2. CLOZARIL [Suspect]
     Dosage: 300 MG DAILY
     Dates: start: 20090401
  3. ATIVAN [Concomitant]

REACTIONS (4)
  - EPISTAXIS [None]
  - POLLAKIURIA [None]
  - RESTLESSNESS [None]
  - VAGINAL HAEMORRHAGE [None]
